FAERS Safety Report 17087358 (Version 1)
Quarter: 2019Q4

REPORT INFORMATION
  Report Type: Spontaneous
  Country: CN (occurrence: CN)
  Receive Date: 20191128
  Receipt Date: 20191128
  Transmission Date: 20200122
  Serious: Yes (Hospitalization)
  Sender: FDA-Public Use
  Company Number: CN-PFIZER INC-2019512045

PATIENT
  Age: 71 Year
  Sex: Female
  Weight: 41.5 kg

DRUGS (1)
  1. MEDROL [Suspect]
     Active Substance: METHYLPREDNISOLONE
     Indication: PLATELET COUNT INCREASED
     Dosage: 12.000 MG, 1X/DAY
     Route: 048
     Dates: start: 20191117, end: 20191117

REACTIONS (4)
  - Product use in unapproved indication [Unknown]
  - Dizziness [Recovering/Resolving]
  - Vomiting [Recovering/Resolving]
  - Off label use [Unknown]

NARRATIVE: CASE EVENT DATE: 20191117
